FAERS Safety Report 21632995 (Version 2)
Quarter: 2023Q1

REPORT INFORMATION
  Report Type: Spontaneous
  Country: GB (occurrence: GB)
  Receive Date: 20221123
  Receipt Date: 20230102
  Transmission Date: 20230418
  Serious: Yes (Life-Threatening)
  Sender: FDA-Public Use
  Company Number: None

PATIENT
  Age: 30 Year
  Sex: Male
  Weight: 96 kg

DRUGS (1)
  1. ATORVASTATIN [Suspect]
     Active Substance: ATORVASTATIN
     Indication: Blood cholesterol
     Dosage: 10MG ONCE A DAY
     Dates: start: 20210901, end: 20211001

REACTIONS (2)
  - Motor neurone disease [Not Recovered/Not Resolved]
  - Oxidative stress [Unknown]

NARRATIVE: CASE EVENT DATE: 20211003
